FAERS Safety Report 24532152 (Version 3)
Quarter: 2024Q4

REPORT INFORMATION
  Report Type: Spontaneous
  Country: KR (occurrence: KR)
  Receive Date: 20241022
  Receipt Date: 20241114
  Transmission Date: 20250114
  Serious: Yes (Disabling)
  Sender: GILEAD
  Company Number: KR-GILEAD-2024-0691665

PATIENT
  Age: 8 Decade
  Sex: Female

DRUGS (1)
  1. VIREAD [Suspect]
     Active Substance: TENOFOVIR DISOPROXIL FUMARATE
     Indication: Product used for unknown indication
     Dosage: UNK
     Route: 065
     Dates: start: 2013

REACTIONS (2)
  - Lipoma [Not Recovered/Not Resolved]
  - Lipodermoid tumour [Not Recovered/Not Resolved]

NARRATIVE: CASE EVENT DATE: 20180101
